FAERS Safety Report 7344490-3 (Version None)
Quarter: 2011Q1

REPORT INFORMATION
  Report Type: 
  Country: None (occurrence: None)
  Receive Date: 20110310
  Receipt Date: 20110216
  Transmission Date: 20110831
  Serious: Yes (Hospitalization, Disabling, Other)
  Sender: FDA-Public Use
  Company Number: US-BAYER-200942494NA

PATIENT
  Sex: Female
  Weight: 76 kg

DRUGS (22)
  1. ALEVE [Concomitant]
  2. ACETAMINOPHEN [Concomitant]
     Indication: PYREXIA
  3. PENICILLIN VK [Concomitant]
     Dosage: 500 MG, UNK
  4. TOPAMAX [Concomitant]
     Indication: MIGRAINE
     Dates: start: 19980101
  5. ACIPHEX [Concomitant]
  6. ACETAMINOPHEN [Concomitant]
  7. UNKNOWN [Concomitant]
  8. PROMETHAZINE [Concomitant]
     Dosage: 200 MG, UNK
  9. TOPAMAX [Concomitant]
     Dosage: 25 MG, UNK
  10. NITROFURANTOIN [Concomitant]
  11. YAZ [Suspect]
     Indication: PRODUCT USED FOR UNKNOWN INDICATION
     Dates: start: 20060601, end: 20080107
  12. PLAVIX [Concomitant]
  13. HYDROCODONE BITARTRATE [Concomitant]
  14. SULFAMETHOXAZOLE [Concomitant]
  15. PROPRANOLOL [Concomitant]
     Dosage: 20 MG, UNK
  16. HYDROXYZINE HCL [Concomitant]
     Dosage: 25 MG, UNK
  17. TAMIFLU [Concomitant]
  18. MULTI-VITAMIN [Concomitant]
     Dosage: INTERMITTENTLY ON A DAILY BASIS
  19. ZOCOR [Concomitant]
  20. PROTONIX [Concomitant]
  21. ERYTHROMYCIN [Concomitant]
     Dosage: 5 MG, UNK
  22. CLONAZEPAM [Concomitant]

REACTIONS (17)
  - VOMITING [None]
  - CRANIAL NERVE PARALYSIS [None]
  - BALANCE DISORDER [None]
  - GAIT DISTURBANCE [None]
  - DIZZINESS [None]
  - TRANSIENT ISCHAEMIC ATTACK [None]
  - CEREBROVASCULAR ACCIDENT [None]
  - ASTHENIA [None]
  - MIGRAINE [None]
  - BLINDNESS [None]
  - NIGHT BLINDNESS [None]
  - PARESIS [None]
  - HEADACHE [None]
  - DIPLOPIA [None]
  - NAUSEA [None]
  - ABDOMINAL PAIN UPPER [None]
  - GASTROENTERITIS VIRAL [None]
